FAERS Safety Report 4895979-8 (Version None)
Quarter: 2005Q4

REPORT INFORMATION
  Report Type: 
  Country: None (occurrence: None)
  Receive Date: 20051220
  Receipt Date: 20050321
  Transmission Date: 20060501
  Serious: Yes (Other)
  Sender: FDA-Public Use
  Company Number: US119850

PATIENT
  Age: 58 Year
  Sex: Male

DRUGS (4)
  1. ENBREL [Suspect]
     Indication: PSORIASIS
     Dosage: 50 MG, 2 IN 1 WEEKS
     Dates: start: 20050208, end: 20050301
  2. METOPROLOL SUCCINATE [Concomitant]
  3. LISINOPRIL [Concomitant]
  4. LANSOPRAZOLE [Concomitant]

REACTIONS (3)
  - NIPPLE PAIN [None]
  - UPPER RESPIRATORY TRACT INFECTION [None]
  - URINARY HESITATION [None]
